FAERS Safety Report 7441109-8 (Version None)
Quarter: 2011Q2

REPORT INFORMATION
  Report Type: 
  Country: None (occurrence: None)
  Receive Date: 20110427
  Receipt Date: 20110414
  Transmission Date: 20111010
  Serious: Yes (Hospitalization)
  Sender: FDA-Public Use
  Company Number: IT-MYLANLABS-2011S1007702

PATIENT
  Age: 75 Year
  Sex: Male

DRUGS (3)
  1. CLARITHROMYCIN [Suspect]
     Indication: BRONCHOPNEUMONIA
     Route: 048
     Dates: start: 20110207, end: 20110211
  2. CLARITHROMYCIN [Interacting]
     Route: 042
     Dates: start: 20110217, end: 20110221
  3. COUMADIN [Interacting]
     Indication: ATRIAL FIBRILLATION
     Route: 048
     Dates: start: 20101001, end: 20110331

REACTIONS (3)
  - DRUG INTERACTION [None]
  - HAEMATOMA [None]
  - PLATELETCRIT DECREASED [None]
